FAERS Safety Report 16738500 (Version 1)
Quarter: 2019Q3

REPORT INFORMATION
  Report Type: Spontaneous
  Country: US (occurrence: US)
  Receive Date: 20190826
  Receipt Date: 20190826
  Transmission Date: 20191005
  Serious: Yes (Hospitalization, Other)
  Sender: FDA-Public Use
  Company Number: US-AMGEN-USASP2019134362

PATIENT
  Age: 36 Year
  Sex: Female

DRUGS (4)
  1. PREDNISONE. [Concomitant]
     Active Substance: PREDNISONE
     Indication: THROMBOCYTOPENIA
     Dosage: UNK
  2. PROSTACYCLIN [Concomitant]
     Active Substance: EPOPROSTENOL
     Indication: PULMONARY ARTERIAL HYPERTENSION
     Dosage: UNK
  3. ROMIPLOSTIM [Suspect]
     Active Substance: ROMIPLOSTIM
     Indication: IMMUNE THROMBOCYTOPENIC PURPURA
     Dosage: UNK
     Route: 065
  4. RITUXIMAB. [Concomitant]
     Active Substance: RITUXIMAB
     Indication: THROMBOCYTOPENIA
     Dosage: UNK

REACTIONS (8)
  - Ascites [Unknown]
  - Nodular regenerative hyperplasia [Unknown]
  - Epistaxis [Unknown]
  - Gravitational oedema [Unknown]
  - Hepatic venous pressure gradient [Unknown]
  - Splenomegaly [Unknown]
  - Non-cirrhotic portal hypertension [Unknown]
  - Drug ineffective [Unknown]
